FAERS Safety Report 25351956 (Version 2)
Quarter: 2025Q3

REPORT INFORMATION
  Report Type: Spontaneous
  Country: EU (occurrence: EU)
  Receive Date: 20250523
  Receipt Date: 20250819
  Transmission Date: 20251021
  Serious: Yes (Hospitalization)
  Sender: BRISTOL-MYERS SQUIBB COMPANY
  Company Number: EU-BRISTOL-MYERS SQUIBB COMPANY-2025-073018

PATIENT
  Age: 50 Year
  Sex: Female
  Weight: 102 kg

DRUGS (1)
  1. NULOJIX [Suspect]
     Active Substance: BELATACEPT
     Indication: Renal transplant
     Dates: start: 2020

REACTIONS (2)
  - Arthropathy [Unknown]
  - Product storage error [Unknown]

NARRATIVE: CASE EVENT DATE: 20250519
